FAERS Safety Report 14694654 (Version 6)
Quarter: 2018Q3

REPORT INFORMATION
  Report Type: Spontaneous
  Country: CA (occurrence: CA)
  Receive Date: 20180329
  Receipt Date: 20180705
  Transmission Date: 20181010
  Serious: No
  Sender: FDA-Public Use
  Company Number: CA-CELLTRION INC.-2017CA016423

PATIENT

DRUGS (11)
  1. INFLECTRA [Suspect]
     Active Substance: INFLIXIMAB-DYYB
     Dosage: 700 MG, CYCLIC (EVERY 0, 2, 6 WEEKS, THEN EVERY 8WEEKS)
     Route: 042
     Dates: start: 20171116
  2. INFLECTRA [Suspect]
     Active Substance: INFLIXIMAB-DYYB
     Dosage: 700 MG, (AFTER 10 WEEKS)
     Route: 042
     Dates: start: 20180123, end: 20180123
  3. INFLECTRA [Suspect]
     Active Substance: INFLIXIMAB-DYYB
     Dosage: 700 MG, CYCLIC (EVERY 0, 2, 6 WEEKS, THEN EVERY 8WEEKS)
     Route: 042
     Dates: start: 20180530, end: 20180530
  4. METHOTREXATE. [Concomitant]
     Active Substance: METHOTREXATE
     Dosage: UNK
  5. INFLECTRA [Suspect]
     Active Substance: INFLIXIMAB-DYYB
     Indication: COLITIS ULCERATIVE
     Dosage: 700 MG, CYCLIC (EVERY 0, 2, 6 WEEKS, THEN EVERY 8WEEKS)
     Route: 042
     Dates: start: 20171006
  6. INFLECTRA [Suspect]
     Active Substance: INFLIXIMAB-DYYB
     Dosage: 700 MG, CYCLIC (EVERY 0, 2, 6 WEEKS, THEN EVERY 8WEEKS)
     Route: 042
     Dates: start: 20180320
  7. PREDNISONE. [Concomitant]
     Active Substance: PREDNISONE
     Dosage: 30 MG, DAILY
     Route: 048
  8. INFLECTRA [Suspect]
     Active Substance: INFLIXIMAB-DYYB
     Dosage: 700 MG, CYCLIC (EVERY 0, 2, 6 WEEKS, THEN EVERY 8WEEKS)
     Route: 042
     Dates: start: 20180320
  9. MEZAVANT [Concomitant]
     Active Substance: MESALAMINE
     Dosage: 4.8 G, DAILY
     Route: 048
  10. INFLECTRA [Suspect]
     Active Substance: INFLIXIMAB-DYYB
     Dosage: 700 MG, CYCLIC (EVERY 0, 2, 6 WEEKS, THEN EVERY 8WEEKS)
     Route: 042
     Dates: start: 20180320
  11. VENLAFAXINE [Concomitant]
     Active Substance: VENLAFAXINE HYDROCHLORIDE
     Dosage: 150 MG, DAILY
     Route: 048

REACTIONS (5)
  - Malaise [Not Recovered/Not Resolved]
  - Drug effect incomplete [Unknown]
  - Inappropriate schedule of drug administration [Unknown]
  - Drug level below therapeutic [Unknown]
  - Product use issue [Unknown]

NARRATIVE: CASE EVENT DATE: 20180123
